FAERS Safety Report 9550708 (Version 2)
Quarter: 2020Q1

REPORT INFORMATION
  Report Type: Report from Study
  Country: US (occurrence: US)
  Receive Date: 20130924
  Receipt Date: 20200218
  Transmission Date: 20200409
  Serious: No
  Sender: FDA-Public Use
  Company Number: US-SANOFI-AVENTIS-2013SA046217

PATIENT
  Age: 53 Year
  Sex: Female

DRUGS (2)
  1. TERIFLUNOMIDE. [Suspect]
     Active Substance: TERIFLUNOMIDE
     Indication: MULTIPLE SCLEROSIS
     Dosage: 7 MG,QD
     Route: 048
     Dates: start: 20130302, end: 2013
  2. TERIFLUNOMIDE. [Suspect]
     Active Substance: TERIFLUNOMIDE
     Dosage: 14 MG QD
     Route: 048
     Dates: start: 20130427

REACTIONS (5)
  - Cough [Not Recovered/Not Resolved]
  - Pyrexia [Recovered/Resolved]
  - Diarrhoea [Recovering/Resolving]
  - Bronchitis [Not Recovered/Not Resolved]
  - Alopecia [Recovering/Resolving]

NARRATIVE: CASE EVENT DATE: 201304
